FAERS Safety Report 6554647-7 (Version None)
Quarter: 2010Q1

REPORT INFORMATION
  Report Type: 
  Country: None (occurrence: None)
  Receive Date: 20100127
  Receipt Date: 20100118
  Transmission Date: 20100710
  Serious: Yes (Hospitalization)
  Sender: FDA-Public Use
  Company Number: FR-PFIZER INC-2010006263

PATIENT
  Age: 74 Year
  Sex: Female

DRUGS (14)
  1. TAHOR [Suspect]
     Indication: HYPERCHOLESTEROLAEMIA
     Dosage: UNK
     Route: 048
     Dates: start: 20090101, end: 20090223
  2. TAVANIC [Suspect]
     Dosage: UNK
     Dates: start: 20090113, end: 20090223
  3. FUCIDINE [Suspect]
     Dosage: UNK
     Dates: start: 20090113, end: 20090223
  4. ISOPTIN [Suspect]
     Indication: HYPERTENSION
     Route: 048
  5. TRIATEC [Concomitant]
  6. DAONIL [Concomitant]
  7. LEVOTHYROXINE SODIUM [Concomitant]
  8. PROCTOLOG [Concomitant]
  9. SPECIAFOLDINE [Concomitant]
  10. FUMAFER [Concomitant]
  11. NEXIUM [Concomitant]
  12. FORADIL [Concomitant]
  13. SPIRIVA [Concomitant]
  14. ZOCOR [Concomitant]

REACTIONS (2)
  - CYTOLYTIC HEPATITIS [None]
  - RHABDOMYOLYSIS [None]
